FAERS Safety Report 11183499 (Version 1)
Quarter: 2015Q2

REPORT INFORMATION
  Report Type: Spontaneous
  Country: US (occurrence: US)
  Receive Date: 20150612
  Receipt Date: 20150612
  Transmission Date: 20150821
  Serious: No
  Sender: FDA-Public Use
  Company Number: US-ASTRAZENECA-2015SE54359

PATIENT
  Sex: Male
  Weight: 61.2 kg

DRUGS (1)
  1. MOVANTIK [Suspect]
     Active Substance: NALOXEGOL OXALATE
     Indication: STEROID THERAPY
     Route: 048
     Dates: start: 20150601

REACTIONS (2)
  - Infrequent bowel movements [Unknown]
  - Abdominal distension [Unknown]
